FAERS Safety Report 5131404-X (Version None)
Quarter: 2006Q4

REPORT INFORMATION
  Report Type: 
  Country: None (occurrence: None)
  Receive Date: 20061020
  Receipt Date: 20061017
  Transmission Date: 20070319
  Serious: Yes (Death)
  Sender: FDA-Public Use
  Company Number: US-GLAXOSMITHKLINE-A0624123A

PATIENT
  Age: 38 Year
  Sex: Male

DRUGS (2)
  1. ADVAIR HFA [Suspect]
     Indication: DRUG USE FOR UNKNOWN INDICATION
     Route: 055
  2. SEREVENT [Suspect]
     Indication: DRUG USE FOR UNKNOWN INDICATION
     Route: 055

REACTIONS (7)
  - APNOEA [None]
  - CARDIAC ARREST [None]
  - CHEST PAIN [None]
  - CYANOSIS [None]
  - FALL [None]
  - VENTRICULAR FIBRILLATION [None]
  - VOMITING [None]
